FAERS Safety Report 5250984-7 (Version None)
Quarter: 2007Q1

REPORT INFORMATION
  Report Type: 
  Country: None (occurrence: None)
  Receive Date: 20070228
  Receipt Date: 20060831
  Transmission Date: 20070707
  Serious: No
  Sender: FDA-Public Use
  Company Number: US-GLAXOSMITHKLINE-A0615303A

PATIENT
  Age: 4 Year
  Sex: Male
  Weight: 52 kg

DRUGS (3)
  1. LAMICTAL [Suspect]
     Indication: BIPOLAR DISORDER
     Dosage: 25MG PER DAY
     Route: 048
     Dates: start: 20060601, end: 20060727
  2. TENEX [Concomitant]
     Dosage: 1MG TWICE PER DAY
  3. SEROQUEL [Concomitant]
     Dosage: 50MG AT NIGHT

REACTIONS (1)
  - RASH GENERALISED [None]
